FAERS Safety Report 5063834-9 (Version None)
Quarter: 2006Q3

REPORT INFORMATION
  Report Type: 
  Country: None (occurrence: None)
  Receive Date: 20060703
  Receipt Date: 20051107
  Transmission Date: 20061208
  Serious: No
  Sender: FDA-Public Use
  Company Number: 2005S1010924

PATIENT
  Age: 40 Year
  Sex: Male

DRUGS (9)
  1. CLOZAPINE [Suspect]
     Dosage: 300 MG;HS;ORAL
     Route: 048
     Dates: start: 20020901
  2. ATENOLOL [Concomitant]
  3. CLOPIDOGREL BISULFATE [Concomitant]
  4. ACETYLSALICYLIC ACID SRT [Concomitant]
  5. PRAVASTATIN SODIUM [Concomitant]
  6. VITAMINS NOS/MINERALS NOS [Concomitant]
  7. FLUTICASONE PROPIONATE [Concomitant]
  8. NAPROXEN [Concomitant]
  9. IPRATROPIUM BROMIDE/SALBUTAMOL SULFATE [Concomitant]

REACTIONS (1)
  - GRANULOCYTOPENIA [None]
